FAERS Safety Report 6988566-9 (Version None)
Quarter: 2010Q3

REPORT INFORMATION
  Report Type: 
  Country: None (occurrence: None)
  Receive Date: 20100827
  Receipt Date: 20090820
  Transmission Date: 20110219
  Serious: Yes (Death, Hospitalization)
  Sender: FDA-Public Use
  Company Number: 001596

PATIENT
  Age: 27 Year
  Sex: Male

DRUGS (6)
  1. LACOSAMIDE [Suspect]
     Indication: STATUS EPILEPTICUS
     Dosage: INTRAVENOUS
     Route: 042
  2. KEPPRA [Suspect]
     Indication: STATUS EPILEPTICUS
     Dosage: INTRAVENOUS
     Route: 042
  3. MIDAZOLAM HCL [Concomitant]
  4. PHENOBARTBITAL [Concomitant]
  5. TOPAMAX [Concomitant]
  6. PROPOFOL [Concomitant]

REACTIONS (3)
  - DRUG INEFFECTIVE [None]
  - SEPSIS [None]
  - STATUS EPILEPTICUS [None]
